FAERS Safety Report 21742048 (Version 1)
Quarter: 2022Q4

REPORT INFORMATION
  Report Type: Spontaneous
  Country: US (occurrence: None)
  Receive Date: 20221215
  Receipt Date: 20221215
  Transmission Date: 20230112
  Serious: No
  Sender: FDA-Public Use
  Company Number: None

PATIENT
  Age: 70 Year
  Sex: Female
  Weight: 116.57 kg

DRUGS (1)
  1. INFLECTRA [Suspect]
     Active Substance: INFLIXIMAB-DYYB
     Indication: Psoriatic arthropathy
     Dosage: FREQUENCY : AS DIRECTED;?INFUSE 586MG INTRAVENOUSLY AT WEEKS 0, 2 AND 6 AS?DIRECTED.?
     Route: 042
     Dates: start: 202109

REACTIONS (1)
  - Pneumonia [None]
